FAERS Safety Report 8614809-1 (Version None)
Quarter: 2012Q3

REPORT INFORMATION
  Report Type: 
  Country: None (occurrence: None)
  Receive Date: 20120823
  Receipt Date: 20120814
  Transmission Date: 20120928
  Serious: Yes (Other)
  Sender: FDA-Public Use
  Company Number: CA-BRISTOL-MYERS SQUIBB COMPANY-16859159

PATIENT
  Age: 37 Year
  Sex: Female

DRUGS (2)
  1. ALLOPURINOL [Concomitant]
  2. SPRYCEL [Suspect]
     Indication: CHRONIC MYELOID LEUKAEMIA
     Dosage: INTER ON 13AUG AND 14AUG2012 AND THEN RESTARTED
     Route: 048
     Dates: start: 20111012

REACTIONS (5)
  - NASOPHARYNGITIS [None]
  - SPLENOMEGALY [None]
  - BACK PAIN [None]
  - VOMITING [None]
  - NAUSEA [None]
